FAERS Safety Report 8756084 (Version 2)
Quarter: 2012Q4

REPORT INFORMATION
  Report Type: 
  Country: US (occurrence: US)
  Receive Date: 20120828
  Receipt Date: 20120914
  Transmission Date: 20130627
  Serious: No
  Sender: FDA-Public Use
  Company Number: US-PFIZER INC-2012206899

PATIENT
  Sex: Female

DRUGS (2)
  1. ADVIL [Suspect]
     Indication: INFLAMMATION
     Dosage: UNK, once a day
  2. ADVIL [Suspect]
     Indication: MUSCULOSKELETAL DISCOMFORT

REACTIONS (1)
  - No adverse event [Unknown]
